FAERS Safety Report 8453638-9 (Version None)
Quarter: 2012Q2

REPORT INFORMATION
  Report Type: 
  Country: None (occurrence: None)
  Receive Date: 20120620
  Receipt Date: 20120611
  Transmission Date: 20120825
  Serious: Yes (Hospitalization)
  Sender: FDA-Public Use
  Company Number: US-CELGENEUS-163-AB007-12061609

PATIENT
  Sex: Male
  Weight: 80.358 kg

DRUGS (12)
  1. PROMETHAZINE [Concomitant]
     Dosage: 25 MILLIGRAM
     Route: 065
  2. ABRAXANE [Suspect]
     Route: 041
     Dates: start: 20120530
  3. CIPROFLOXACIN HYDROCHLORIDE [Concomitant]
     Dosage: 500
     Route: 065
  4. HYDROMORPHONE HCL [Concomitant]
     Route: 065
  5. INSULIN [Concomitant]
     Dosage: 70/30
     Route: 065
  6. GEMCITABINE [Suspect]
     Route: 041
     Dates: start: 20120530
  7. COLACE [Concomitant]
     Dosage: 200
     Route: 065
  8. POLYETHYLENE GLYCOL [Concomitant]
     Dosage: 17 GRAM
     Route: 065
  9. GEMCITABINE [Suspect]
     Dosage: 1000 MILLIGRAM/SQ. METER
     Route: 041
     Dates: start: 20120405
  10. ABRAXANE [Suspect]
     Dosage: 125 MILLIGRAM/SQ. METER
     Route: 041
     Dates: start: 20120405
  11. FENTANYL [Concomitant]
     Dosage: 50 MICROGRAM
     Route: 065
  12. MORPHINE SULFATE [Concomitant]
     Dosage: 60 MILLIGRAM
     Route: 065

REACTIONS (1)
  - DIZZINESS [None]
